FAERS Safety Report 18915954 (Version 3)
Quarter: 2025Q3

REPORT INFORMATION
  Report Type: Spontaneous
  Country: CA (occurrence: CA)
  Receive Date: 20210219
  Receipt Date: 20250809
  Transmission Date: 20251021
  Serious: Yes (Hospitalization, Other)
  Sender: ALEXION PHARMACEUTICALS
  Company Number: 2021A051542

PATIENT
  Age: 71 Year
  Sex: Male

DRUGS (1)
  1. CALQUENCE [Suspect]
     Active Substance: ACALABRUTINIB
     Route: 065

REACTIONS (4)
  - Retroperitoneal haemorrhage [Unknown]
  - Blood pressure decreased [Unknown]
  - Haemoglobin abnormal [Unknown]
  - Thrombocytopenia [Unknown]

NARRATIVE: CASE EVENT DATE: 20200517
